FAERS Safety Report 15618185 (Version 1)
Quarter: 2018Q4

REPORT INFORMATION
  Report Type: Spontaneous
  Country: US (occurrence: US)
  Receive Date: 20181114
  Receipt Date: 20181114
  Transmission Date: 20190205
  Serious: No
  Sender: FDA-Public Use
  Company Number: US-PFIZER INC-2018456286

PATIENT
  Age: 61 Year
  Sex: Male
  Weight: 155.13 kg

DRUGS (1)
  1. LYRICA [Suspect]
     Active Substance: PREGABALIN
     Indication: PAIN IN EXTREMITY
     Dosage: UNK

REACTIONS (3)
  - Peripheral swelling [Unknown]
  - Musculoskeletal stiffness [Unknown]
  - Drug ineffective [Unknown]
